FAERS Safety Report 24367857 (Version 2)
Quarter: 2024Q3

REPORT INFORMATION
  Report Type: Report from Study
  Country: US (occurrence: US)
  Receive Date: 20240926
  Receipt Date: 20240927
  Transmission Date: 20241017
  Serious: Yes (Hospitalization, Other)
  Sender: PFIZER
  Company Number: US-PFIZER INC-PV202400096516

PATIENT
  Age: 84 Year
  Sex: Male

DRUGS (4)
  1. VYNDAMAX [Suspect]
     Active Substance: TAFAMIDIS
     Indication: Cardiac amyloidosis
     Dosage: 61 MG, 1X/DAY
     Route: 048
     Dates: start: 2023
  2. VYNDAMAX [Suspect]
     Active Substance: TAFAMIDIS
     Indication: Familial amyloidosis
     Dosage: 61 MG, 1X/DAY
     Route: 048
     Dates: start: 2023
  3. TORSEMIDE [Concomitant]
     Active Substance: TORSEMIDE
     Dosage: UNK
  4. WAINUA [Concomitant]
     Active Substance: EPLONTERSEN
     Indication: Neuropathy peripheral
     Dosage: ONCE MONTHLY INJECTIONS
     Dates: start: 2024

REACTIONS (9)
  - Cellulitis [Unknown]
  - Cardiac discomfort [Unknown]
  - Melaena [Unknown]
  - Neuropathy peripheral [Unknown]
  - Product dose omission issue [Unknown]
  - Scrotal swelling [Recovered/Resolved]
  - Oedema peripheral [Not Recovered/Not Resolved]
  - Vomiting [Unknown]
  - Confusional state [Unknown]

NARRATIVE: CASE EVENT DATE: 20240101
